FAERS Safety Report 8764869 (Version 2)
Quarter: 2012Q4

REPORT INFORMATION
  Report Type: 
  Country: JP (occurrence: JP)
  Receive Date: 20120901
  Receipt Date: 20121024
  Transmission Date: 20130627
  Serious: Yes (Death, Other)
  Sender: FDA-Public Use
  Company Number: JP-009507513-2007SP025371

PATIENT
  Age: 55 Year
  Sex: Female
  Weight: 57 kg

DRUGS (16)
  1. TEMOZOLOMIDE [Suspect]
     Indication: GLIOBLASTOMA MULTIFORME
     Dosage: 150 mg/m2, QD
     Route: 048
     Dates: start: 20061106, end: 20061110
  2. TEMOZOLOMIDE [Suspect]
     Dosage: 150 mg/m2, QD
     Route: 048
     Dates: start: 20061204, end: 20061208
  3. TEMOZOLOMIDE [Suspect]
     Dosage: 150 mg/m2, QD
     Route: 048
     Dates: start: 20070108, end: 20070112
  4. TEMOZOLOMIDE [Suspect]
     Dosage: 150 mg/m2, QD
     Route: 048
     Dates: start: 20070315, end: 20070319
  5. TEMOZOLOMIDE [Suspect]
     Dosage: 150 mg/m2, QD
     Route: 048
     Dates: start: 20070412, end: 20070416
  6. DEPAS [Concomitant]
     Dosage: Daily dose unknown
     Route: 048
     Dates: start: 20061106
  7. TERNELIN [Concomitant]
     Route: 048
     Dates: start: 20061106, end: 20061129
  8. ALEVIATIN [Concomitant]
     Indication: PROPHYLAXIS
     Dosage: daily dose unknown
     Route: 048
     Dates: start: 20061106
  9. KYTRIL [Concomitant]
     Indication: PROPHYLAXIS
     Dosage: daily dose unknown
     Route: 048
     Dates: start: 20061106, end: 20061108
  10. PANTOSIN [Concomitant]
     Indication: PROPHYLAXIS
     Route: 048
     Dates: start: 20070214
  11. GASTER [Concomitant]
     Indication: PROPHYLAXIS
     Route: 048
     Dates: start: 20070214, end: 20070305
  12. LOXONIN [Concomitant]
     Route: 048
     Dates: start: 20070301, end: 20070308
  13. CHINESE LICORICE (+) CHINESE PEONY (+) CINNAMON (+) EPHEDRA (+) GINGER [Concomitant]
     Route: 048
     Dates: start: 20070303, end: 20070312
  14. AFTACH [Concomitant]
     Route: 048
     Dates: start: 20070411, end: 20070415
  15. CEFAMEZIN [Concomitant]
     Dosage: REINTRODUCED 07-12SEP2007
     Route: 042
     Dates: start: 20070227, end: 20070305
  16. KENALOG [Concomitant]
     Route: 061
     Dates: start: 20070425, end: 20070508

REACTIONS (26)
  - Disease progression [Fatal]
  - Depression [Not Recovered/Not Resolved]
  - Brain oedema [Not Recovered/Not Resolved]
  - Cerebral infarction [Recovered/Resolved with Sequelae]
  - Disease progression [Recovered/Resolved with Sequelae]
  - Radiation necrosis [Recovered/Resolved with Sequelae]
  - Eosinophil count decreased [Recovered/Resolved]
  - Basophil count decreased [Recovered/Resolved]
  - Bone marrow failure [Recovered/Resolved]
  - Stomatitis [Recovered/Resolved]
  - Hepatic function abnormal [Recovered/Resolved]
  - Malaise [Recovering/Resolving]
  - Nausea [Recovered/Resolved]
  - Protein total decreased [Not Recovered/Not Resolved]
  - Constipation [Not Recovered/Not Resolved]
  - Tinea pedis [Recovered/Resolved]
  - Neutrophil count increased [Recovered/Resolved]
  - C-reactive protein increased [Not Recovered/Not Resolved]
  - Lymphocyte count decreased [Not Recovered/Not Resolved]
  - Aspartate aminotransferase increased [Recovered/Resolved]
  - Alanine aminotransferase increased [Recovered/Resolved]
  - Neoplasm [Recovered/Resolved with Sequelae]
  - Headache [Recovered/Resolved]
  - Nasopharyngitis [Recovered/Resolved]
  - Postoperative wound infection [Recovered/Resolved]
  - Basophil count decreased [Recovered/Resolved]
